FAERS Safety Report 23103407 (Version 1)
Quarter: 2023Q4

REPORT INFORMATION
  Report Type: Spontaneous
  Country: US (occurrence: US)
  Receive Date: 20231025
  Receipt Date: 20231025
  Transmission Date: 20240109
  Serious: Yes (Other)
  Sender: FDA-Public Use
  Company Number: US-SA-SAC20231021000315

PATIENT
  Age: 9 Month
  Sex: Male

DRUGS (2)
  1. ALPROLIX [Suspect]
     Active Substance: EFTRENONACOG ALFA
     Indication: Haemorrhage
     Dosage: 100 IU/KG
     Route: 040
  2. ALPROLIX [Suspect]
     Active Substance: EFTRENONACOG ALFA
     Indication: Haemorrhage
     Dosage: 100 IU/KG
     Route: 040

REACTIONS (3)
  - Anti factor IX antibody increased [Not Recovered/Not Resolved]
  - Rash [Not Recovered/Not Resolved]
  - Infusion site pain [Not Recovered/Not Resolved]
